FAERS Safety Report 14581893 (Version 2)
Quarter: 2018Q1

REPORT INFORMATION
  Report Type: Report from Study
  Country: CA (occurrence: CA)
  Receive Date: 20180228
  Receipt Date: 20180308
  Transmission Date: 20180509
  Serious: Yes (Hospitalization, Other)
  Sender: FDA-Public Use
  Company Number: CA-JNJFOC-20180231494

PATIENT
  Sex: Female
  Weight: 65 kg

DRUGS (2)
  1. STELARA [Suspect]
     Active Substance: USTEKINUMAB
     Indication: CROHN^S DISEASE
     Dosage: FIRST SUBCUTANEOUS INJECTION
     Route: 042
     Dates: start: 20180223
  2. STELARA [Suspect]
     Active Substance: USTEKINUMAB
     Indication: CROHN^S DISEASE
     Dosage: STRENGTH = 130 MG
     Route: 042
     Dates: start: 20180104

REACTIONS (8)
  - Crohn^s disease [Recovering/Resolving]
  - Drug effect incomplete [Unknown]
  - Clostridium difficile infection [Recovering/Resolving]
  - Folate deficiency [Recovering/Resolving]
  - Off label use [Unknown]
  - Vitamin D deficiency [Recovering/Resolving]
  - Blood iron decreased [Recovering/Resolving]
  - Product use issue [Unknown]

NARRATIVE: CASE EVENT DATE: 2018
